FAERS Safety Report 8810936 (Version 1)
Quarter: 2012Q4

REPORT INFORMATION
  Report Type: Spontaneous
  Country: US (occurrence: None)
  Receive Date: 20120924
  Receipt Date: 20120924
  Transmission Date: 20130627
  Serious: Yes (Hospitalization)
  Sender: FDA-Public Use
  Company Number: None

PATIENT
  Age: 59 Year
  Sex: Female
  Weight: 90.72 kg

DRUGS (2)
  1. PACLITAXEL [Suspect]
     Indication: PERITONEAL CARCINOMA
     Route: 041
     Dates: start: 20111230, end: 20111230
  2. PACLITAXEL [Suspect]
     Indication: OVARIAN DISORDER
     Route: 041
     Dates: start: 20111230, end: 20111230

REACTIONS (3)
  - Hypotension [None]
  - Syncope [None]
  - Dehydration [None]
